FAERS Safety Report 21218223 (Version 2)
Quarter: 2022Q3

REPORT INFORMATION
  Report Type: Spontaneous
  Country: US (occurrence: US)
  Receive Date: 20220816
  Receipt Date: 20220829
  Transmission Date: 20221026
  Serious: Yes (Hospitalization, Other)
  Sender: FDA-Public Use
  Company Number: US-PFIZER INC-202201049922

PATIENT
  Age: 54 Year
  Sex: Male

DRUGS (4)
  1. TESTOSTERONE [Suspect]
     Active Substance: TESTOSTERONE
     Indication: Muscle building therapy
     Dosage: UNK
     Route: 030
  2. TESTOSTERONE [Suspect]
     Active Substance: TESTOSTERONE
     Dosage: UNK (SHOTS)
     Route: 030
  3. TAMOXIFEN [Concomitant]
     Active Substance: TAMOXIFEN
     Indication: Muscle building therapy
     Dosage: UNK
  4. RALOXIFENE [Concomitant]
     Active Substance: RALOXIFENE
     Indication: Muscle building therapy
     Dosage: UNK

REACTIONS (9)
  - Cardiomyopathy [Recovered/Resolved]
  - Tachycardia [Recovered/Resolved]
  - Intentional product misuse [Unknown]
  - Cardiac failure acute [Recovering/Resolving]
  - Myocardial injury [Recovering/Resolving]
  - Pulmonary oedema [Recovering/Resolving]
  - Atrial fibrillation [Recovering/Resolving]
  - Left ventricular dysfunction [Recovering/Resolving]
  - Polycythaemia [Recovering/Resolving]
